FAERS Safety Report 5798474-7 (Version None)
Quarter: 2008Q3

REPORT INFORMATION
  Report Type: 
  Country: None (occurrence: None)
  Receive Date: 20080702
  Receipt Date: 20080626
  Transmission Date: 20090109
  Serious: Yes (Hospitalization)
  Sender: FDA-Public Use
  Company Number: PHHY2008CZ12148

PATIENT

DRUGS (2)
  1. TEGRETOL [Suspect]
     Dosage: 2X1/2 TABLET/DAY
     Route: 048
     Dates: start: 20080602
  2. IBALGIN [Concomitant]

REACTIONS (3)
  - LIP OEDEMA [None]
  - OEDEMA PERIPHERAL [None]
  - RASH MACULO-PAPULAR [None]
